FAERS Safety Report 19048183 (Version 2)
Quarter: 2021Q1

REPORT INFORMATION
  Report Type: Spontaneous
  Country: BR (occurrence: BR)
  Receive Date: 20210324
  Receipt Date: 20210326
  Transmission Date: 20210420
  Serious: Yes (Other)
  Sender: FDA-Public Use
  Company Number: BR-ABBVIE-21K-020-3822146-00

PATIENT
  Sex: Female
  Weight: 41 kg

DRUGS (5)
  1. HUMIRA [Interacting]
     Active Substance: ADALIMUMAB
     Dosage: LOADING DOSE WEEK 02
     Route: 058
  2. HUMIRA [Suspect]
     Active Substance: ADALIMUMAB
     Indication: CROHN^S DISEASE
     Dosage: LOADING DOSE WEEK 0
     Route: 058
     Dates: start: 2015, end: 2015
  3. MESIGYNA [Interacting]
     Active Substance: ESTRADIOL VALERATE\NORETHINDRONE ENANTHATE
     Indication: CONTRACEPTION
     Route: 030
     Dates: start: 201704, end: 2019
  4. HUMIRA [Interacting]
     Active Substance: ADALIMUMAB
     Route: 058
     Dates: end: 2019
  5. AZATHIOPRINE. [Concomitant]
     Active Substance: AZATHIOPRINE
     Indication: CROHN^S DISEASE
     Dates: start: 2015, end: 2019

REACTIONS (6)
  - Abortion of ectopic pregnancy [Unknown]
  - Maternal exposure during pregnancy [Unknown]
  - Ectopic pregnancy [Unknown]
  - Internal haemorrhage [Recovered/Resolved]
  - Drug interaction [Unknown]
  - Incorrect route of product administration [Unknown]

NARRATIVE: CASE EVENT DATE: 2017
